FAERS Safety Report 8613573-X (Version None)
Quarter: 2012Q3

REPORT INFORMATION
  Report Type: 
  Country: None (occurrence: None)
  Receive Date: 20120823
  Receipt Date: 20120808
  Transmission Date: 20120928
  Serious: Yes (Hospitalization)
  Sender: FDA-Public Use
  Company Number: DE-009507513-1208DEU006170

PATIENT

DRUGS (5)
  1. CARVEDILOL [Concomitant]
     Indication: CARDIAC FAILURE
     Dosage: 12.5 MG, BID
     Route: 048
  2. ENALAPRIL PLUS [Concomitant]
     Indication: HYPERTENSION
     Dosage: 1 DF, QD
  3. DIGOXIN [Concomitant]
     Indication: ATRIAL TACHYCARDIA
     Dosage: 0.07 MG, QD
     Route: 048
  4. ZOCOR [Suspect]
     Indication: CARDIOVASCULAR EVENT PROPHYLAXIS
     Dosage: 40 MG, QD
     Route: 048
  5. PRADAXA [Suspect]
     Indication: ATRIAL FIBRILLATION
     Dosage: 110 MG, BID
     Route: 048
     Dates: start: 20120110, end: 20120204

REACTIONS (2)
  - RHABDOMYOLYSIS [None]
  - RENAL FAILURE [None]
